FAERS Safety Report 9788896 (Version 1)
Quarter: 2013Q4

REPORT INFORMATION
  Report Type: Spontaneous
  Country: BR (occurrence: BR)
  Receive Date: 20131230
  Receipt Date: 20131230
  Transmission Date: 20140711
  Serious: Yes (Other)
  Sender: FDA-Public Use
  Company Number: BR-GLAXOSMITHKLINE-B0955547A

PATIENT
  Sex: Female

DRUGS (1)
  1. RHYTHMOL [Suspect]
     Indication: ATRIAL FIBRILLATION
     Route: 065
     Dates: start: 201312, end: 201312

REACTIONS (2)
  - Cardiac fibrillation [Unknown]
  - Malaise [Unknown]
